FAERS Safety Report 20692705 (Version 1)
Quarter: 2022Q2

REPORT INFORMATION
  Report Type: Spontaneous
  Country: US (occurrence: US)
  Receive Date: 20220409
  Receipt Date: 20220409
  Transmission Date: 20220721
  Serious: Yes (Other)
  Sender: FDA-Public Use
  Company Number: US-NOVARTISPH-NVSC2022US077107

PATIENT
  Sex: Male

DRUGS (1)
  1. COSENTYX [Suspect]
     Active Substance: SECUKINUMAB
     Indication: Product used for unknown indication
     Dosage: 300 MG, UNKNOWN (150MG X 2 = 300MG, STOPPED COSENTYX 7 OR 8 MONTHS AGO)
     Route: 065

REACTIONS (2)
  - Neoplasm malignant [Unknown]
  - Rebound psoriasis [Unknown]
